FAERS Safety Report 9926762 (Version 1)
Quarter: 2014Q1

REPORT INFORMATION
  Report Type: Spontaneous
  Country: US (occurrence: US)
  Receive Date: 20140226
  Receipt Date: 20140226
  Transmission Date: 20141002
  Serious: No
  Sender: FDA-Public Use
  Company Number: US-AMGEN-USASP2013078249

PATIENT
  Age: 38 Year
  Sex: Female

DRUGS (8)
  1. ENBREL [Suspect]
     Indication: PRODUCT USED FOR UNKNOWN INDICATION
     Dosage: 50 MG, QWK
     Route: 058
  2. SINGULAIR [Concomitant]
     Dosage: 4 MG, UNK
  3. ZYRTEC [Concomitant]
     Dosage: 5 MG, UNK
  4. IRON                               /00023503/ [Concomitant]
     Dosage: UNK
  5. B COMPLEX WITH C [Concomitant]
     Dosage: UNK
  6. OMEPRAZOLE [Concomitant]
     Dosage: 10 MG, UNK
  7. ACIDOPHILUS [Concomitant]
     Dosage: UNK
  8. VITAMIN D3 [Concomitant]
     Dosage: 400 UNIT, UNK

REACTIONS (1)
  - Psoriatic arthropathy [Unknown]
